FAERS Safety Report 18588106 (Version 2)
Quarter: 2021Q1

REPORT INFORMATION
  Report Type: Spontaneous
  Country: US (occurrence: US)
  Receive Date: 20201207
  Receipt Date: 20210104
  Transmission Date: 20210419
  Serious: No
  Sender: FDA-Public Use
  Company Number: US-BEH-2020125666

PATIENT
  Sex: Male

DRUGS (1)
  1. HIZENTRA [Suspect]
     Active Substance: HUMAN IMMUNOGLOBULIN G
     Indication: IMMUNODEFICIENCY
     Dosage: 2 GRAM, QW
     Route: 058
     Dates: start: 202009, end: 202010

REACTIONS (4)
  - Arthralgia [Not Recovered/Not Resolved]
  - Infusion site rash [Unknown]
  - Headache [Unknown]
  - Infusion site nodule [Unknown]
